FAERS Safety Report 9232992 (Version 1)
Quarter: 2013Q2

REPORT INFORMATION
  Report Type: Spontaneous
  Country: DE (occurrence: DE)
  Receive Date: 20130416
  Receipt Date: 20130416
  Transmission Date: 20140414
  Serious: Yes (Other)
  Sender: FDA-Public Use
  Company Number: DE-JNJFOC-20130403651

PATIENT
  Age: 16 Year
  Sex: Male

DRUGS (2)
  1. REMICADE [Suspect]
     Indication: CROHN^S DISEASE
     Route: 042
  2. REMICADE [Suspect]
     Indication: CROHN^S DISEASE
     Dosage: A DECREASE OF TIME INTERVAL BETWEEN 2 INFUSIONS WAS DONE
     Route: 042

REACTIONS (3)
  - Depression [Recovered/Resolved]
  - Adverse drug reaction [Unknown]
  - Therapeutic response decreased [Unknown]
